FAERS Safety Report 23423346 (Version 1)
Quarter: 2024Q1

REPORT INFORMATION
  Report Type: Spontaneous
  Country: US (occurrence: None)
  Receive Date: 20240119
  Receipt Date: 20240119
  Transmission Date: 20240409
  Serious: No
  Sender: FDA-Public Use
  Company Number: None

PATIENT
  Age: 47 Year
  Sex: Female
  Weight: 144 kg

DRUGS (6)
  1. WEGOVY [Suspect]
     Active Substance: SEMAGLUTIDE
     Indication: Obesity
     Dosage: OTHER QUANTITY : 2.4 MILLIGRAMS;?OTHER FREQUENCY : WEEKLY;?
     Route: 058
     Dates: end: 20240118
  2. WEGOVY [Suspect]
     Active Substance: SEMAGLUTIDE
     Indication: Diabetes prophylaxis
  3. WEGOVY [Concomitant]
     Active Substance: SEMAGLUTIDE
  4. VITAMINS [Concomitant]
     Active Substance: VITAMINS
  5. VITAMIN B12 [Concomitant]
     Active Substance: CYANOCOBALAMIN
  6. VITAMIN D3 [Concomitant]
     Active Substance: CHOLECALCIFEROL

REACTIONS (4)
  - Rash [None]
  - Pruritus [None]
  - Discomfort [None]
  - Oral mucosal eruption [None]

NARRATIVE: CASE EVENT DATE: 20240117
